FAERS Safety Report 8567245-0 (Version None)
Quarter: 2012Q3

REPORT INFORMATION
  Report Type: 
  Country: None (occurrence: None)
  Receive Date: 20120730
  Receipt Date: 20120730
  Transmission Date: 20120928
  Serious: Yes (Other)
  Sender: FDA-Public Use
  Company Number: None

PATIENT
  Age: 54 Year
  Sex: Female
  Weight: 90.7194 kg

DRUGS (2)
  1. ATORVASTATIN [Suspect]
     Indication: BLOOD CHOLESTEROL
     Dosage: ONE DAILY, PO
     Route: 048
     Dates: start: 20110811, end: 20120709
  2. ATORVASTATIN [Suspect]
     Indication: BLOOD PRESSURE
     Dosage: ONE DAILY, PO
     Route: 048
     Dates: start: 20110811, end: 20120709

REACTIONS (1)
  - ALOPECIA [None]
